FAERS Safety Report 6666824-5 (Version None)
Quarter: 2010Q2

REPORT INFORMATION
  Report Type: 
  Country: None (occurrence: None)
  Receive Date: 20100401
  Receipt Date: 20100401
  Transmission Date: 20101027
  Serious: Yes (Hospitalization)
  Sender: FDA-Public Use
  Company Number: None

PATIENT
  Age: 50 Year
  Sex: Male

DRUGS (1)
  1. LAMOTRIGINE [Suspect]
     Indication: MIGRAINE
     Dosage: 200 MG EVERY DAY PO
     Route: 048
     Dates: start: 20090917, end: 20100218

REACTIONS (2)
  - DEPRESSION [None]
  - SUICIDAL IDEATION [None]
